FAERS Safety Report 18827516 (Version 1)
Quarter: 2021Q1

REPORT INFORMATION
  Report Type: Spontaneous
  Country: US (occurrence: US)
  Receive Date: 20210201
  Receipt Date: 20210201
  Transmission Date: 20210419
  Serious: Yes (Other)
  Sender: FDA-Public Use
  Company Number: US-ABBVIE-20K-163-3466405-00

PATIENT
  Sex: Female
  Weight: 110.22 kg

DRUGS (4)
  1. METHYLPREDNISOLONE. [Suspect]
     Active Substance: METHYLPREDNISOLONE
     Indication: RHEUMATOID ARTHRITIS
     Route: 065
  2. HUMIRA [Suspect]
     Active Substance: ADALIMUMAB
     Indication: RHEUMATOID ARTHRITIS
     Route: 058
  3. XELJANZ XR [Suspect]
     Active Substance: TOFACITINIB CITRATE
     Indication: RHEUMATOID ARTHRITIS
     Route: 065
     Dates: end: 2018
  4. XELJANZ XR [Suspect]
     Active Substance: TOFACITINIB CITRATE
     Route: 065

REACTIONS (14)
  - Cardiac disorder [Not Recovered/Not Resolved]
  - Hunger [Unknown]
  - Gastrointestinal disorder [Not Recovered/Not Resolved]
  - Immune system disorder [Unknown]
  - Dry mouth [Not Recovered/Not Resolved]
  - Osteoarthritis [Unknown]
  - Drug ineffective [Unknown]
  - Dyspnoea [Recovering/Resolving]
  - Lung neoplasm malignant [Unknown]
  - Exercise tolerance decreased [Not Recovered/Not Resolved]
  - Cushingoid [Not Recovered/Not Resolved]
  - Fat tissue increased [Unknown]
  - Swelling face [Unknown]
  - Rheumatoid arthritis [Unknown]

NARRATIVE: CASE EVENT DATE: 2019
